FAERS Safety Report 15283468 (Version 1)
Quarter: 2018Q3

REPORT INFORMATION
  Report Type: Spontaneous
  Country: US (occurrence: US)
  Receive Date: 20180816
  Receipt Date: 20180816
  Transmission Date: 20181010
  Serious: No
  Sender: FDA-Public Use
  Company Number: US-PFIZER INC-2018329029

PATIENT
  Sex: Male

DRUGS (1)
  1. CHANTIX [Suspect]
     Active Substance: VARENICLINE TARTRATE
     Indication: SMOKING CESSATION THERAPY
     Dosage: UNK

REACTIONS (9)
  - Blister [Unknown]
  - Swollen tongue [Unknown]
  - Abnormal dreams [Unknown]
  - Swelling face [Unknown]
  - Tongue blistering [Unknown]
  - Erythema [Unknown]
  - Constipation [Unknown]
  - Intentional dose omission [Unknown]
  - Burning sensation [Unknown]
